FAERS Safety Report 5343273-3 (Version None)
Quarter: 2007Q2

REPORT INFORMATION
  Report Type: 
  Country: None (occurrence: None)
  Receive Date: 20070502
  Receipt Date: 20060411
  Transmission Date: 20071010
  Serious: Yes (Life-Threatening)
  Sender: FDA-Public Use
  Company Number: PHEH2006US01724

PATIENT
  Age: 70 Year
  Sex: Female

DRUGS (8)
  1. LOTREL [Suspect]
     Indication: HYPERTENSION
     Dosage: 5/20MG, ORAL
     Route: 048
     Dates: start: 19990112, end: 20060126
  2. PREMARIN [Concomitant]
  3. PRILOSEC [Concomitant]
  4. ZYRTEC [Concomitant]
  5. TRAZODONE HCL [Concomitant]
  6. AMITRIPTYLINE HCL [Concomitant]
  7. INDAPAMIDE [Concomitant]
  8. CELEBREX [Concomitant]

REACTIONS (1)
  - ANGIOEDEMA [None]
